FAERS Safety Report 6012338-5 (Version None)
Quarter: 2008Q4

REPORT INFORMATION
  Report Type: 
  Country: None (occurrence: None)
  Receive Date: 20081218
  Receipt Date: 20080821
  Transmission Date: 20090506
  Serious: No
  Sender: FDA-Public Use
  Company Number: US-ASTRAZENECA-2008UW17137

PATIENT
  Age: 40 Year
  Sex: Female
  Weight: 72.6 kg

DRUGS (7)
  1. SYMBICORT [Suspect]
     Indication: ASTHMA
     Dosage: 160 / 4.5 ONCE
     Route: 055
     Dates: start: 20080820
  2. SINGULAIR [Concomitant]
  3. PREMARIN [Concomitant]
  4. ACTONEL [Concomitant]
  5. PROZAC [Concomitant]
  6. XANAX [Concomitant]
  7. ULTRAM [Concomitant]

REACTIONS (2)
  - MUSCLE SPASMS [None]
  - MUSCULAR WEAKNESS [None]
